FAERS Safety Report 25038959 (Version 1)
Quarter: 2025Q1

REPORT INFORMATION
  Report Type: Spontaneous
  Country: CA (occurrence: CA)
  Receive Date: 20250305
  Receipt Date: 20250305
  Transmission Date: 20250409
  Serious: Yes (Other)
  Sender: ADVANZ PHARMA
  Company Number: CA-SANOFI-AVENTIS R+D-2025SA044013

PATIENT

DRUGS (3)
  1. HYDROXYCHLOROQUINE [Suspect]
     Active Substance: HYDROXYCHLOROQUINE
     Route: 065
  2. METHOTREXATE [Concomitant]
     Active Substance: METHOTREXATE
     Indication: Sarcoidosis
     Dosage: 25 MG, WEEKLY
     Route: 058
  3. PREDNISONE [Concomitant]
     Active Substance: PREDNISONE

REACTIONS (1)
  - Cardiac sarcoidosis [Not Recovered/Not Resolved]

NARRATIVE: CASE EVENT DATE: 20240101
